FAERS Safety Report 4785998-4 (Version None)
Quarter: 2005Q4

REPORT INFORMATION
  Report Type: 
  Country: None (occurrence: None)
  Receive Date: 20051003
  Receipt Date: 20050921
  Transmission Date: 20060501
  Serious: Yes (Other)
  Sender: FDA-Public Use
  Company Number: 200516705US

PATIENT
  Sex: Female

DRUGS (6)
  1. LANTUS [Suspect]
     Indication: DIABETES MELLITUS NON-INSULIN-DEPENDENT
     Dosage: DOSE UNIT: UNITS
     Route: 058
     Dates: start: 20050607, end: 20050918
  2. OPTICLIK (INSULIN INJECTION PEN) [Suspect]
     Dosage: DOSE: NOT PROVIDED
     Dates: start: 20050607
  3. CATAPRES [Concomitant]
     Dosage: DOSE: NOT PROVIDED
  4. PRANDIN [Concomitant]
  5. GLUCOPHAGE [Concomitant]
     Dosage: DOSE: NOT PROVIDED
  6. CARBIDOPA [Concomitant]
     Dosage: DOSE: NOT PROVIDED

REACTIONS (5)
  - HYPOTENSION [None]
  - INSOMNIA [None]
  - PHARMACEUTICAL PRODUCT COMPLAINT [None]
  - RASH PRURITIC [None]
  - URTICARIA [None]
